FAERS Safety Report 5533699-7 (Version None)
Quarter: 2007Q4

REPORT INFORMATION
  Report Type: 
  Country: None (occurrence: None)
  Receive Date: 20071120
  Receipt Date: 20070911
  Transmission Date: 20080405
  Serious: No
  Sender: FDA-Public Use
  Company Number: WAES 0707USA01656

PATIENT
  Age: 77 Year
  Sex: Female
  Weight: 90.7194 kg

DRUGS (10)
  1. JANUVIA [Suspect]
     Indication: DIABETES MELLITUS
     Dosage: 100 MG/DAILY/PO ; 100 MG/DAILY/PO
     Route: 048
     Dates: start: 20070615, end: 20070625
  2. JANUVIA [Suspect]
     Indication: DIABETES MELLITUS
     Dosage: 100 MG/DAILY/PO ; 100 MG/DAILY/PO
     Route: 048
     Dates: start: 20070702, end: 20070701
  3. HUMALOG [Concomitant]
  4. LANTUS [Concomitant]
  5. MICARDIS [Concomitant]
  6. TOPROL-XL [Concomitant]
  7. AMIODARONE HCL [Concomitant]
  8. GABAPENTIN [Concomitant]
  9. HYDRALAZINE [Concomitant]
  10. WARFARIN SODIUM [Concomitant]

REACTIONS (2)
  - BACK PAIN [None]
  - RENAL PAIN [None]
